FAERS Safety Report 24408895 (Version 1)
Quarter: 2024Q4

REPORT INFORMATION
  Report Type: Spontaneous
  Country: US (occurrence: US)
  Receive Date: 20241007
  Receipt Date: 20241007
  Transmission Date: 20250115
  Serious: Yes (Hospitalization)
  Sender: ABBVIE
  Company Number: US-ABBVIE-5950328

PATIENT
  Sex: Female

DRUGS (1)
  1. SKYRIZI [Suspect]
     Active Substance: RISANKIZUMAB-RZAA
     Indication: Product used for unknown indication
     Route: 058

REACTIONS (6)
  - Anaemia [Unknown]
  - Dehydration [Unknown]
  - Candida infection [Unknown]
  - Frequent bowel movements [Unknown]
  - Dyspnoea [Unknown]
  - Haemoglobin decreased [Unknown]
